FAERS Safety Report 8458409-5 (Version None)
Quarter: 2012Q2

REPORT INFORMATION
  Report Type: 
  Country: None (occurrence: None)
  Receive Date: 20120622
  Receipt Date: 20120612
  Transmission Date: 20120825
  Serious: Yes (Hospitalization)
  Sender: FDA-Public Use
  Company Number: JP-VERTEX PHARMACEUTICALS INC.-AE-2012-008092

PATIENT
  Age: 54 Year
  Sex: Male

DRUGS (6)
  1. RIBAVIRIN [Concomitant]
     Route: 048
     Dates: start: 20120404, end: 20120525
  2. FAMOTIDINE [Concomitant]
     Route: 048
     Dates: start: 20120409, end: 20120524
  3. URSO 250 [Concomitant]
     Route: 048
     Dates: start: 20120525
  4. PEGINTERFERON ALFA-2B [Concomitant]
     Route: 058
     Dates: start: 20120404, end: 20120525
  5. RABEPRAZOLE SODIUM [Concomitant]
     Route: 048
     Dates: start: 20120525
  6. TELAVIC (TELAPREVIR) [Suspect]
     Indication: HEPATITIS C
     Route: 048
     Dates: start: 20120404, end: 20120523

REACTIONS (5)
  - PYREXIA [None]
  - MOUTH ULCERATION [None]
  - PIGMENTATION DISORDER [None]
  - RASH [None]
  - PRURITUS [None]
